FAERS Safety Report 7749779-1 (Version None)
Quarter: 2011Q3

REPORT INFORMATION
  Report Type: 
  Country: None (occurrence: None)
  Receive Date: 20110914
  Receipt Date: 20110907
  Transmission Date: 20111222
  Serious: Yes (Hospitalization)
  Sender: FDA-Public Use
  Company Number: DE-AMGEN-DEUCT2011014869

PATIENT
  Age: 49 Year
  Sex: Male

DRUGS (3)
  1. BLINDED PLACEBO [Suspect]
     Indication: HYPERPARATHYROIDISM SECONDARY
     Route: 048
     Dates: start: 20061126
  2. CINACALCET HYDROCHLORIDE [Suspect]
     Indication: HYPERPARATHYROIDISM SECONDARY
     Route: 048
     Dates: start: 20061126
  3. DECOSTRIOL [Concomitant]
     Dosage: 1 MUG, QD
     Dates: start: 20060905

REACTIONS (1)
  - HYPERPARATHYROIDISM SECONDARY [None]
